FAERS Safety Report 6596198-X (Version None)
Quarter: 2010Q1

REPORT INFORMATION
  Report Type: 
  Country: None (occurrence: None)
  Receive Date: 20100223
  Receipt Date: 20100216
  Transmission Date: 20100710
  Serious: Yes (Other)
  Sender: FDA-Public Use
  Company Number: FR-ROCHE-681362

PATIENT
  Sex: Female
  Weight: 65 kg

DRUGS (6)
  1. BONIVA [Suspect]
     Indication: OSTEOPOROSIS
     Route: 048
     Dates: start: 20080101, end: 20100101
  2. RIVOTRIL [Concomitant]
  3. LYSANXIA [Concomitant]
  4. PROPRANOLOL [Concomitant]
  5. IDARAC [Concomitant]
  6. DUSPATALIN [Concomitant]

REACTIONS (1)
  - OSTEONECROSIS [None]
